FAERS Safety Report 14592638 (Version 3)
Quarter: 2018Q3

REPORT INFORMATION
  Report Type: Report from Study
  Country: FR (occurrence: FR)
  Receive Date: 20180302
  Receipt Date: 20180705
  Transmission Date: 20181010
  Serious: Yes (Death, Other)
  Sender: FDA-Public Use
  Company Number: FR-PFIZER INC-2018085352

PATIENT

DRUGS (2)
  1. LEVETIRACETAM. [Suspect]
     Active Substance: LEVETIRACETAM
     Dosage: UNK
  2. CERITINIB [Interacting]
     Active Substance: CERITINIB
     Indication: NON-SMALL CELL LUNG CANCER
     Dosage: 750 MG, DAILY (DAY?1 AS A STARTING DOSE)
     Route: 048

REACTIONS (2)
  - Drug interaction [Fatal]
  - Hepatotoxicity [Fatal]
